FAERS Safety Report 23822160 (Version 1)
Quarter: 2024Q2

REPORT INFORMATION
  Report Type: Spontaneous
  Country: CA (occurrence: CA)
  Receive Date: 20240506
  Receipt Date: 20240506
  Transmission Date: 20240716
  Serious: Yes (Hospitalization, Other)
  Sender: FDA-Public Use
  Company Number: CA-TEVA-VS-3193989

PATIENT
  Age: 29 Year
  Sex: Female

DRUGS (8)
  1. COPAXONE [Suspect]
     Active Substance: GLATIRAMER ACETATE
     Indication: Multiple sclerosis
     Route: 065
  2. MESALAMINE [Suspect]
     Active Substance: MESALAMINE
     Indication: Colitis ulcerative
     Route: 065
  3. FOLIC ACID/MINERALS NOS/VITAMINS NOS [Concomitant]
     Indication: Pregnancy
     Route: 065
  4. IRON [Concomitant]
     Active Substance: IRON
     Indication: Pregnancy
     Route: 065
  5. MAGNESIUM [Concomitant]
     Active Substance: MAGNESIUM
     Indication: Pregnancy
     Route: 065
  6. NICOTINAMIDE [Concomitant]
     Active Substance: NIACINAMIDE
     Indication: Pregnancy
     Route: 065
  7. VITAMIN D [Concomitant]
     Active Substance: VITAMIN D NOS
     Indication: Multiple sclerosis
     Route: 065
  8. VITAMIN D [Concomitant]
     Active Substance: VITAMIN D NOS
     Indication: Multiple sclerosis
     Route: 065

REACTIONS (5)
  - Abortion spontaneous [Recovered/Resolved]
  - Exposure during pregnancy [Recovered/Resolved]
  - Drug ineffective [Recovered/Resolved]
  - Intestinal obstruction [Recovered/Resolved]
  - Colitis ulcerative [Recovered/Resolved]
